FAERS Safety Report 6884677-7 (Version None)
Quarter: 2010Q3

REPORT INFORMATION
  Report Type: 
  Country: None (occurrence: None)
  Receive Date: 20100727
  Receipt Date: 20100708
  Transmission Date: 20110219
  Serious: Yes (Other)
  Sender: FDA-Public Use
  Company Number: DSA_43471_2010

PATIENT
  Sex: Female

DRUGS (1)
  1. ATIVAN [Suspect]
     Indication: PRODUCT USED FOR UNKNOWN INDICATION
     Dosage: DF
     Dates: start: 20100101

REACTIONS (4)
  - BLADDER PAIN [None]
  - DYSURIA [None]
  - MICTURITION URGENCY [None]
  - TUBULOINTERSTITIAL NEPHRITIS [None]
